FAERS Safety Report 6346062-6 (Version None)
Quarter: 2009Q3

REPORT INFORMATION
  Report Type: 
  Country: None (occurrence: None)
  Receive Date: 20090909
  Receipt Date: 20090828
  Transmission Date: 20100115
  Serious: Yes (Hospitalization, Other)
  Sender: FDA-Public Use
  Company Number: US-ELI_LILLY_AND_COMPANY-US200909000127

PATIENT
  Sex: Female

DRUGS (5)
  1. CYMBALTA [Suspect]
     Dosage: 90 MG, DAILY (1/D)
     Route: 048
     Dates: start: 20080101
  2. KLONOPIN [Concomitant]
     Dosage: 3 MG, DAILY (1/D)
  3. TRILEPTAL [Concomitant]
     Dosage: 1800 MG, DAILY (1/D)
  4. TRAZODONE [Concomitant]
     Dosage: 300 MG, DAILY (1/D)
  5. HALDOL [Concomitant]
     Indication: ANXIETY
     Dosage: 1 MG, EVERY 6 HRS AS NEEDED

REACTIONS (6)
  - BLOOD SODIUM DECREASED [None]
  - DEPRESSION [None]
  - DRUG INEFFECTIVE [None]
  - HOSPITALISATION [None]
  - LOSS OF CONSCIOUSNESS [None]
  - SUICIDAL IDEATION [None]
